FAERS Safety Report 15880386 (Version 3)
Quarter: 2019Q3

REPORT INFORMATION
  Report Type: Report from Study
  Country: DE (occurrence: DE)
  Receive Date: 20190128
  Receipt Date: 20190808
  Transmission Date: 20191004
  Serious: Yes (Hospitalization)
  Sender: FDA-Public Use
  Company Number: DE-JNJFOC-20190129251

PATIENT
  Age: 63 Year
  Sex: Male

DRUGS (8)
  1. IBUPROFEN. [Concomitant]
     Active Substance: IBUPROFEN
     Indication: TIBIA FRACTURE
     Route: 065
     Dates: start: 20180913
  2. STELARA [Suspect]
     Active Substance: USTEKINUMAB
     Indication: PSORIASIS
     Dosage: LATEST DOSE WAS ADMINISTERED 02/JUL/2019
     Route: 058
     Dates: start: 20170914
  3. TILIDIN [Concomitant]
     Active Substance: NALOXONE HYDROCHLORIDE\TILIDINE HYDROCHLORIDE
     Indication: TIBIA FRACTURE
     Route: 065
     Dates: start: 20180913
  4. PANTOZOL [Concomitant]
     Active Substance: PANTOPRAZOLE SODIUM
     Indication: TIBIA FRACTURE
     Route: 065
     Dates: start: 20180913
  5. ENSTILAR [Concomitant]
     Active Substance: BETAMETHASONE DIPROPIONATE\CALCIPOTRIENE HYDRATE
     Indication: PSORIASIS
     Route: 061
     Dates: start: 20180901
  6. ENSTILAR [Concomitant]
     Active Substance: BETAMETHASONE DIPROPIONATE\CALCIPOTRIENE HYDRATE
     Indication: PSORIATIC ARTHROPATHY
  7. CLEXANE [Concomitant]
     Active Substance: ENOXAPARIN SODIUM
     Indication: TIBIA FRACTURE
     Route: 065
     Dates: start: 20180913
  8. METAMIZOLE [Concomitant]
     Active Substance: METAMIZOLE
     Indication: TIBIA FRACTURE
     Route: 065
     Dates: start: 20180913

REACTIONS (3)
  - Headache [Recovered/Resolved]
  - Pneumonia [Recovered/Resolved]
  - Nasopharyngitis [Recovered/Resolved]

NARRATIVE: CASE EVENT DATE: 20180118
